FAERS Safety Report 7970973-9 (Version None)
Quarter: 2011Q4

REPORT INFORMATION
  Report Type: 
  Country: None (occurrence: None)
  Receive Date: 20111212
  Receipt Date: 20111203
  Transmission Date: 20120403
  Serious: Yes (Other)
  Sender: FDA-Public Use
  Company Number: US-BRISTOL-MYERS SQUIBB COMPANY-15562242

PATIENT
  Age: 55 Year
  Sex: Female
  Weight: 111 kg

DRUGS (2)
  1. PAXIL [Concomitant]
  2. ABILIFY [Suspect]
     Indication: PARANOIA
     Dosage: COURSES:2

REACTIONS (6)
  - HEAD INJURY [None]
  - IMPAIRED DRIVING ABILITY [None]
  - SYNCOPE [None]
  - DEMENTIA [None]
  - AMNESIA [None]
  - FEELING ABNORMAL [None]
